FAERS Safety Report 9410940 (Version 3)
Quarter: 2014Q1

REPORT INFORMATION
  Report Type: Spontaneous
  Country: US (occurrence: US)
  Receive Date: 20130719
  Receipt Date: 20140220
  Transmission Date: 20141002
  Serious: No
  Sender: FDA-Public Use
  Company Number: US-PFIZER INC-2013212366

PATIENT
  Age: 61 Year
  Sex: Female
  Weight: 77.1 kg

DRUGS (7)
  1. CHANTIX [Suspect]
     Indication: SMOKING CESSATION THERAPY
     Dosage: 0.5 MG, 1X/DAY
     Route: 048
     Dates: start: 2012, end: 2012
  2. CHANTIX [Suspect]
     Dosage: 1 MG, 2X/DAY
     Route: 048
     Dates: start: 2012, end: 2012
  3. CHANTIX [Suspect]
     Dosage: UNK
     Route: 048
     Dates: start: 2012
  4. SYMBICORT [Concomitant]
     Dosage: 160 (UNKNOWN UNIT), 2X/DAY
  5. ZYRTEC [Concomitant]
     Dosage: UNK, 1X/DAY
  6. PRO-AIR [Concomitant]
     Dosage: 2 P (PUFFS), AS NEEDED
  7. MUCINEX [Concomitant]
     Dosage: 600 MG, 2X/DAY

REACTIONS (2)
  - Abdominal pain upper [Unknown]
  - Drug ineffective [Unknown]
